FAERS Safety Report 7906803-0 (Version None)
Quarter: 2011Q4

REPORT INFORMATION
  Report Type: 
  Country: None (occurrence: None)
  Receive Date: 20111110
  Receipt Date: 20111108
  Transmission Date: 20120403
  Serious: Yes (Other)
  Sender: FDA-Public Use
  Company Number: US-JNJFOC-20111102993

PATIENT
  Age: 56 Year
  Sex: Male

DRUGS (2)
  1. NICODERM CQ [Suspect]
     Indication: SMOKING CESSATION THERAPY
     Dosage: FOR APPROXIMATELY 9 MONTHS
     Route: 065
     Dates: start: 20110101
  2. NICORETTE [Suspect]
     Indication: SMOKING CESSATION THERAPY
     Route: 065

REACTIONS (6)
  - APPLICATION SITE REACTION [None]
  - DRUG INEFFECTIVE [None]
  - APPLICATION SITE RASH [None]
  - NICOTINE DEPENDENCE [None]
  - APPLICATION SITE PRURITUS [None]
  - INTENTIONAL DRUG MISUSE [None]
